FAERS Safety Report 10911899 (Version 1)
Quarter: 2015Q1

REPORT INFORMATION
  Report Type: Spontaneous
  Country: US (occurrence: None)
  Receive Date: 20150128
  Receipt Date: 20150128
  Transmission Date: 20150721
  Serious: No
  Sender: FDA-Public Use
  Company Number: 2014TUS011417

PATIENT
  Age: 4 Decade
  Sex: Female

DRUGS (1)
  1. BRINTELLIX [Suspect]
     Active Substance: VORTIOXETINE HYDROBROMIDE
     Indication: MAJOR DEPRESSION
     Dosage: 10 MG (SAMPLES), ONCE A DAY, ORAL
     Route: 048

REACTIONS (4)
  - Vomiting [None]
  - Urticaria [None]
  - Agitation [None]
  - Pruritus [None]
